FAERS Safety Report 12389335 (Version 3)
Quarter: 2016Q2

REPORT INFORMATION
  Report Type: Report from Study
  Country: US (occurrence: US)
  Receive Date: 20160520
  Receipt Date: 20160614
  Transmission Date: 20160815
  Serious: Yes (Hospitalization, Other)
  Sender: FDA-Public Use
  Company Number: US-GILEAD-2016-0214692

PATIENT
  Age: 48 Year
  Sex: Male

DRUGS (14)
  1. LAMICTAL [Concomitant]
     Active Substance: LAMOTRIGINE
  2. ANDROGEL [Concomitant]
     Active Substance: TESTOSTERONE
  3. LIDODERM [Concomitant]
     Active Substance: LIDOCAINE
  4. PREDNISONE. [Concomitant]
     Active Substance: PREDNISONE
  5. TEGRETOL [Concomitant]
     Active Substance: CARBAMAZEPINE
  6. GABAPENTIN. [Concomitant]
     Active Substance: GABAPENTIN
  7. CHOLECALCIFEROL [Concomitant]
     Active Substance: CHOLECALCIFEROL
  8. AMBRISENTAN [Suspect]
     Active Substance: AMBRISENTAN
     Indication: PULMONARY HYPERTENSION
     Dosage: 5 MG, QD
     Route: 065
     Dates: start: 20141229
  9. PREVACID [Concomitant]
     Active Substance: LANSOPRAZOLE
  10. ALEVE [Concomitant]
     Active Substance: NAPROXEN SODIUM
  11. XARELTO [Concomitant]
     Active Substance: RIVAROXABAN
  12. DILAUDID [Concomitant]
     Active Substance: HYDROMORPHONE HYDROCHLORIDE
  13. REVATIO [Concomitant]
     Active Substance: SILDENAFIL CITRATE
  14. CELLCEPT [Concomitant]
     Active Substance: MYCOPHENOLATE MOFETIL\MYCOPHENOLATE MOFETIL HYDROCHLORIDE

REACTIONS (4)
  - Cardiac failure [Not Recovered/Not Resolved]
  - Limb discomfort [Not Recovered/Not Resolved]
  - Swelling [Not Recovered/Not Resolved]
  - Pain [Not Recovered/Not Resolved]

NARRATIVE: CASE EVENT DATE: 20160402
